FAERS Safety Report 18275453 (Version 2)
Quarter: 2021Q3

REPORT INFORMATION
  Report Type: Spontaneous
  Country: AU (occurrence: AU)
  Receive Date: 20200916
  Receipt Date: 20210827
  Transmission Date: 20211014
  Serious: Yes (Hospitalization, Other)
  Sender: FDA-Public Use
  Company Number: AU-JNJFOC-20200907247

PATIENT
  Age: 30 Year
  Sex: Male

DRUGS (19)
  1. PALIPERIDONE PALMITATE [Suspect]
     Active Substance: PALIPERIDONE PALMITATE
     Route: 030
     Dates: start: 2015
  2. INVEGA SUSTENNA [Suspect]
     Active Substance: PALIPERIDONE PALMITATE
     Indication: PRODUCT USED FOR UNKNOWN INDICATION
     Route: 030
     Dates: start: 2016
  3. ARIPIPRAZOLE. [Suspect]
     Active Substance: ARIPIPRAZOLE
     Indication: BLOOD PROLACTIN DECREASED
     Route: 048
     Dates: start: 2013
  4. ARIPIPRAZOLE. [Suspect]
     Active Substance: ARIPIPRAZOLE
     Route: 048
     Dates: start: 2017
  5. PALIPERIDONE PALMITATE [Suspect]
     Active Substance: PALIPERIDONE PALMITATE
     Route: 030
     Dates: start: 2016
  6. ABILIFY [Suspect]
     Active Substance: ARIPIPRAZOLE
     Route: 048
     Dates: start: 2015
  7. ARIPIPRAZOLE. [Suspect]
     Active Substance: ARIPIPRAZOLE
     Route: 048
     Dates: start: 2015
  8. INVEGA SUSTENNA [Suspect]
     Active Substance: PALIPERIDONE PALMITATE
     Route: 030
     Dates: start: 2018
  9. PALIPERIDONE PALMITATE [Suspect]
     Active Substance: PALIPERIDONE PALMITATE
     Route: 030
     Dates: start: 2016
  10. PALIPERIDONE PALMITATE [Suspect]
     Active Substance: PALIPERIDONE PALMITATE
     Route: 030
     Dates: start: 2017
  11. ARIPIPRAZOLE. [Suspect]
     Active Substance: ARIPIPRAZOLE
     Route: 048
     Dates: start: 2016
  12. ARIPIPRAZOLE. [Suspect]
     Active Substance: ARIPIPRAZOLE
     Route: 048
     Dates: start: 2017
  13. REXULTI [Suspect]
     Active Substance: BREXPIPRAZOLE
     Route: 065
     Dates: start: 20200922
  14. ABILIFY [Suspect]
     Active Substance: ARIPIPRAZOLE
     Indication: PRODUCT USED FOR UNKNOWN INDICATION
     Route: 048
     Dates: start: 2013
  15. ARIPIPRAZOLE. [Suspect]
     Active Substance: ARIPIPRAZOLE
     Route: 048
     Dates: start: 2014
  16. REXULTI [Suspect]
     Active Substance: BREXPIPRAZOLE
     Indication: SCHIZOPHRENIA
     Route: 065
     Dates: start: 2018
  17. QUETIAPINE. [Suspect]
     Active Substance: QUETIAPINE
     Indication: PRODUCT USED FOR UNKNOWN INDICATION
     Route: 065
     Dates: start: 2013
  18. PALIPERIDONE PALMITATE [Suspect]
     Active Substance: PALIPERIDONE PALMITATE
     Indication: PRODUCT USED FOR UNKNOWN INDICATION
     Route: 030
     Dates: start: 2014
  19. INVEGA SUSTENNA [Suspect]
     Active Substance: PALIPERIDONE PALMITATE
     Route: 030
     Dates: start: 2017, end: 2018

REACTIONS (12)
  - Sinus node dysfunction [Unknown]
  - Presyncope [Unknown]
  - Cardiac arrest [Unknown]
  - Hypotension [Unknown]
  - Dizziness postural [Not Recovered/Not Resolved]
  - Chest pain [Unknown]
  - Syncope [Unknown]
  - Nausea [Unknown]
  - Orthostatic hypertension [Unknown]
  - Schizophrenia [Unknown]
  - Chest discomfort [Not Recovered/Not Resolved]
  - Dizziness [Unknown]

NARRATIVE: CASE EVENT DATE: 2018
